FAERS Safety Report 11249809 (Version 1)
Quarter: 2015Q3

REPORT INFORMATION
  Report Type: Spontaneous
  Country: US (occurrence: US)
  Receive Date: 20150708
  Receipt Date: 20150708
  Transmission Date: 20151125
  Serious: No
  Sender: FDA-Public Use
  Company Number: US-ELI_LILLY_AND_COMPANY-US201007005065

PATIENT
  Age: 61 Year
  Sex: Female

DRUGS (3)
  1. HERCEPTIN [Concomitant]
     Active Substance: TRASTUZUMAB
     Indication: BREAST CANCER
     Dosage: 300 MG, UNK
  2. GEMZAR [Suspect]
     Active Substance: GEMCITABINE HYDROCHLORIDE
  3. GEMZAR [Suspect]
     Active Substance: GEMCITABINE HYDROCHLORIDE
     Indication: BREAST CANCER
     Dosage: 1900 MG/M2, UNK

REACTIONS (1)
  - Tumour marker increased [Unknown]

NARRATIVE: CASE EVENT DATE: 20100720
